FAERS Safety Report 8173619-2 (Version None)
Quarter: 2012Q1

REPORT INFORMATION
  Report Type: 
  Country: None (occurrence: None)
  Receive Date: 20120223
  Receipt Date: 20120210
  Transmission Date: 20120608
  Serious: Yes (Hospitalization)
  Sender: FDA-Public Use
  Company Number: 1000028239

PATIENT
  Age: 84 Year
  Sex: Female

DRUGS (5)
  1. LEXAPRO [Suspect]
     Dosage: 5 MG (5 MG, 1 IN 1 D),ORAL
     Route: 048
     Dates: start: 20111116
  2. DUROTEP (FENTANYL) (FENTANYL) [Concomitant]
  3. LEXAPRO [Suspect]
     Dosage: 10 MG (10 MG, 1 IN 1 D),ORAL
     Route: 048
     Dates: start: 20111101
  4. REMICADE [Concomitant]
  5. RHEUMATREX (METHOTREXATE) (METHOTREXATE) [Concomitant]

REACTIONS (4)
  - INAPPROPRIATE ANTIDIURETIC HORMONE SECRETION [None]
  - LOSS OF CONSCIOUSNESS [None]
  - CONVULSION [None]
  - DIZZINESS [None]
